FAERS Safety Report 7178846-9 (Version None)
Quarter: 2010Q4

REPORT INFORMATION
  Report Type: 
  Country: None (occurrence: None)
  Receive Date: 20101221
  Receipt Date: 20101210
  Transmission Date: 20110411
  Serious: Yes (Other)
  Sender: FDA-Public Use
  Company Number: US-BRISTOL-MYERS SQUIBB COMPANY-15435456

PATIENT
  Age: 48 Year
  Sex: Male
  Weight: 92 kg

DRUGS (2)
  1. SPRYCEL [Suspect]
     Indication: NEOPLASM
     Dosage: LAST DOSE ADMIN:18NOV10,2800 MG (CYCLE 6)
     Route: 048
     Dates: start: 20100628
  2. BEVACIZUMAB [Suspect]
     Indication: NEOPLASM
     Dosage: CYCLE:28DAYS TOTAL COURSES:6 (930MG) 5 CYCLE 5MG/KG OVER 30-90MINS Q 2 WEEKS
     Route: 042
     Dates: start: 20100628

REACTIONS (1)
  - HYPONATRAEMIA [None]
